FAERS Safety Report 15713892 (Version 1)
Quarter: 2018Q4

REPORT INFORMATION
  Report Type: Spontaneous
  Country: US (occurrence: US)
  Receive Date: 20181212
  Receipt Date: 20181212
  Transmission Date: 20190205
  Serious: No
  Sender: FDA-Public Use
  Company Number: US-ENDO PHARMACEUTICALS INC-2018-039455

PATIENT
  Age: 67 Year
  Sex: Male
  Weight: 86.17 kg

DRUGS (2)
  1. TESTIM [Suspect]
     Active Substance: TESTOSTERONE
     Indication: BLOOD TESTOSTERONE DECREASED
     Dosage: ONE THIRD OF TUBE
     Route: 065
     Dates: start: 20180523, end: 201805
  2. REPATHA [Concomitant]
     Active Substance: EVOLOCUMAB
     Indication: BLOOD CHOLESTEROL INCREASED

REACTIONS (4)
  - Product odour abnormal [Unknown]
  - Dizziness [Unknown]
  - Nausea [Unknown]
  - Product physical issue [Unknown]

NARRATIVE: CASE EVENT DATE: 20180523
